FAERS Safety Report 23387762 (Version 2)
Quarter: 2024Q2

REPORT INFORMATION
  Report Type: Spontaneous
  Country: US (occurrence: US)
  Receive Date: 20240110
  Receipt Date: 20240610
  Transmission Date: 20240716
  Serious: No
  Sender: FDA-Public Use
  Company Number: US-CURIUM-2023001027

PATIENT

DRUGS (2)
  1. TECHNETIUM TC-99M SODIUM PERTECHNETATE [Suspect]
     Active Substance: TECHNETIUM TC-99M SODIUM PERTECHNETATE
     Indication: Radioisotope scan
     Route: 065
     Dates: start: 20231109, end: 20231109
  2. MYOVIEW [Concomitant]
     Active Substance: TECHNETIUM TC-99M TETROFOSMIN
     Indication: Radioisotope scan
     Route: 065
     Dates: start: 20231109, end: 20231109

REACTIONS (1)
  - Radioisotope scan abnormal [Recovered/Resolved]

NARRATIVE: CASE EVENT DATE: 20231109
